FAERS Safety Report 19451478 (Version 1)
Quarter: 2021Q2

REPORT INFORMATION
  Report Type: Spontaneous
  Country: US (occurrence: US)
  Receive Date: 20210622
  Receipt Date: 20210622
  Transmission Date: 20210717
  Serious: Yes (Hospitalization)
  Sender: FDA-Public Use
  Company Number: None

PATIENT
  Age: 84 Year
  Sex: Male

DRUGS (5)
  1. CYCLOSPORINE MODIFIED [Suspect]
     Active Substance: CYCLOSPORINE
     Indication: RENAL TRANSPLANT
     Route: 048
     Dates: start: 20200902
  2. GENTAMICIN OIN [Concomitant]
  3. DEXAMETHASON [Concomitant]
     Active Substance: DEXAMETHASONE
  4. HYDRALAZINE [Concomitant]
     Active Substance: HYDRALAZINE HYDROCHLORIDE
  5. CYCLOSPORINE MOD 50MG CAP [Suspect]
     Active Substance: CYCLOSPORINE
     Indication: RENAL TRANSPLANT
     Dosage: IN EVENING
     Route: 048
     Dates: start: 20200902

REACTIONS (1)
  - Malaise [None]

NARRATIVE: CASE EVENT DATE: 20210607
